FAERS Safety Report 5264199-X (Version None)
Quarter: 2007Q1

REPORT INFORMATION
  Report Type: 
  Country: None (occurrence: None)
  Receive Date: 20070313
  Receipt Date: 20070305
  Transmission Date: 20070707
  Serious: Yes (Hospitalization)
  Sender: FDA-Public Use
  Company Number: JP-PFIZER INC-2007015060

PATIENT
  Sex: Female
  Weight: 74 kg

DRUGS (2)
  1. DETRUSITOL SR [Suspect]
     Indication: POLLAKIURIA
     Dates: start: 20070109, end: 20070211
  2. TOFRANIL [Suspect]
     Indication: POLLAKIURIA
     Route: 048
     Dates: start: 20070109, end: 20070211

REACTIONS (2)
  - ERYTHEMA MULTIFORME [None]
  - URTICARIA [None]
